FAERS Safety Report 4901443-X (Version None)
Quarter: 2006Q1

REPORT INFORMATION
  Report Type: 
  Country: None (occurrence: None)
  Receive Date: 20060206
  Receipt Date: 20060125
  Transmission Date: 20060701
  Serious: Yes (Other)
  Sender: FDA-Public Use
  Company Number: PHBS2006ES01363

PATIENT
  Age: 60 Year
  Sex: Female

DRUGS (8)
  1. AREDIA [Suspect]
     Indication: MULTIPLE MYELOMA
  2. ZOMETA [Suspect]
     Indication: MULTIPLE MYELOMA
     Dosage: UNK, UNK
     Route: 065
     Dates: start: 20040101, end: 20060101
  3. DEXAMETHASONE/DOXORUBICIN/VINCRISTINE [Concomitant]
     Dosage: 5 CYCLES
     Dates: start: 19981101
  4. PREDNISONE [Concomitant]
  5. LEVOTHROID [Concomitant]
  6. LORAZEPAM [Concomitant]
  7. MELPHALAN [Concomitant]
     Dates: start: 20050101, end: 20050101
  8. INTERFERON [Concomitant]

REACTIONS (5)
  - BONE DISORDER [None]
  - IMPAIRED HEALING [None]
  - OSTEONECROSIS [None]
  - PAIN [None]
  - TOOTH EXTRACTION [None]
